FAERS Safety Report 4711986-X (Version None)
Quarter: 2005Q2

REPORT INFORMATION
  Report Type: 
  Country: None (occurrence: None)
  Receive Date: 20050524
  Receipt Date: 20050524
  Transmission Date: 20051028
  Serious: Yes (Life-Threatening, Hospitalization)
  Sender: FDA-Public Use
  Company Number: None

PATIENT
  Sex: Female
  Weight: 66.6788 kg

DRUGS (1)
  1. BISMUTH IV BRADFORD RESEARCH INSTITUTE [Suspect]
     Indication: LYME DISEASE
     Dosage: 300 MG IV X 1
     Route: 042
     Dates: start: 20050418

REACTIONS (5)
  - DRUG TOXICITY [None]
  - HAEMODIALYSIS [None]
  - METABOLIC ACIDOSIS [None]
  - OFF LABEL USE [None]
  - RENAL FAILURE ACUTE [None]
